FAERS Safety Report 6718219-3 (Version None)
Quarter: 2010Q2

REPORT INFORMATION
  Report Type: 
  Country: None (occurrence: None)
  Receive Date: 20100504
  Receipt Date: 20100415
  Transmission Date: 20101027
  Serious: Yes (Other)
  Sender: FDA-Public Use
  Company Number: 232174J09USA

PATIENT
  Age: 38 Year
  Sex: Female

DRUGS (2)
  1. REBIF [Suspect]
     Indication: DRUG USE FOR UNKNOWN INDICATION
     Dosage: 44 MCG, 3 IN 1 WK, SUBCUTANEOUS
     Route: 058
     Dates: start: 20080613
  2. UNSPECIFIED MEDICATIONS (ALL OTHER THERAPEUTIC PRODUCTS) [Concomitant]

REACTIONS (5)
  - CONDITION AGGRAVATED [None]
  - DEPRESSION [None]
  - HALLUCINATION [None]
  - SCHIZOPHRENIFORM DISORDER [None]
  - SUICIDAL IDEATION [None]
